FAERS Safety Report 16038113 (Version 3)
Quarter: 2019Q4

REPORT INFORMATION
  Report Type: Report from Study
  Country: US (occurrence: US)
  Receive Date: 20190305
  Receipt Date: 20191105
  Transmission Date: 20200122
  Serious: Yes (Death, Hospitalization)
  Sender: FDA-Public Use
  Company Number: US-ACTELION-A-US2017-152908

PATIENT
  Sex: Female
  Weight: 86.17 kg

DRUGS (5)
  1. ADEMPAS [Concomitant]
     Active Substance: RIOCIGUAT
  2. OXYGEN. [Concomitant]
     Active Substance: OXYGEN
  3. OPSUMIT [Suspect]
     Active Substance: MACITENTAN
     Indication: PULMONARY ARTERIAL HYPERTENSION
     Dosage: 10 MG, QD
     Route: 048
  4. ADCIRCA [Concomitant]
     Active Substance: TADALAFIL
  5. AMLODIPINE [Concomitant]
     Active Substance: AMLODIPINE BESYLATE

REACTIONS (18)
  - Weight increased [Unknown]
  - Multiple allergies [Unknown]
  - Arthralgia [Unknown]
  - Disease progression [Fatal]
  - Chronic obstructive pulmonary disease [Unknown]
  - Sinus congestion [Unknown]
  - Upper-airway cough syndrome [Unknown]
  - Bronchitis [Recovering/Resolving]
  - Dyspnoea [Unknown]
  - Rales [Unknown]
  - Anxiety [Unknown]
  - Crepitations [Unknown]
  - Seasonal allergy [Unknown]
  - Memory impairment [Unknown]
  - Oedema peripheral [Unknown]
  - Dyspnoea exertional [Recovering/Resolving]
  - Productive cough [Unknown]
  - Cough [Unknown]
